FAERS Safety Report 5537084-3 (Version None)
Quarter: 2007Q4

REPORT INFORMATION
  Report Type: 
  Country: None (occurrence: None)
  Receive Date: 20071120
  Receipt Date: 20070119
  Transmission Date: 20080405
  Serious: Yes (Hospitalization, Other)
  Sender: FDA-Public Use
  Company Number: 33724

PATIENT
  Sex: Female
  Weight: 92.0802 kg

DRUGS (1)
  1. METHOTREXATE [Suspect]
     Indication: ECTOPIC PREGNANCY
     Dosage: 94.86MG/IM DIVIDED DOSE GLUTEAL
     Route: 030
     Dates: start: 20061120

REACTIONS (1)
  - DRUG INEFFECTIVE [None]
